FAERS Safety Report 6896368-7 (Version None)
Quarter: 2010Q3

REPORT INFORMATION
  Report Type: 
  Country: None (occurrence: None)
  Receive Date: 20100802
  Receipt Date: 20090106
  Transmission Date: 20110219
  Serious: No
  Sender: FDA-Public Use
  Company Number: US-PFIZER INC-2009152114

PATIENT
  Sex: Female
  Weight: 68 kg

DRUGS (3)
  1. GABAPENTIN [Suspect]
     Indication: FIBROMYALGIA
     Dosage: 300 MG, 3X/DAY
     Dates: start: 20081223
  2. ANTIDEPRESSANTS [Concomitant]
     Indication: DEPRESSION
     Dosage: UNK
  3. ANXIOLYTICS [Concomitant]
     Indication: ANXIETY
     Dosage: UNK

REACTIONS (2)
  - HEADACHE [None]
  - PAIN [None]
